FAERS Safety Report 5603204-5 (Version None)
Quarter: 2008Q1

REPORT INFORMATION
  Report Type: 
  Country: None (occurrence: None)
  Receive Date: 20080123
  Receipt Date: 20080110
  Transmission Date: 20080703
  Serious: Yes (Hospitalization)
  Sender: FDA-Public Use
  Company Number: 2008000906

PATIENT
  Age: 60 Year
  Sex: Female
  Weight: 62.1428 kg

DRUGS (9)
  1. LISTERINE AGENT COOL BLUE BUBBLE BLAST (NO ACTIVE INGREDIENT) [Suspect]
     Indication: DENTAL PLAQUE
     Dosage: ORAL
     Route: 048
     Dates: start: 20070701, end: 20071201
  2. DIOVAN [Concomitant]
  3. SYNTHROID [Concomitant]
  4. ATIVAN [Concomitant]
  5. CALCIUM (CALCIUM) [Concomitant]
  6. MULTI-VITAMINS [Concomitant]
  7. ISOSORBIDE (ISOSORBIDE) [Concomitant]
  8. PROZAC [Concomitant]
  9. VITAMIN A (NATURAL) CAP [Concomitant]

REACTIONS (8)
  - ABDOMINAL PAIN UPPER [None]
  - GASTROENTERITIS SALMONELLA [None]
  - PNEUMONIA [None]
  - STOMATITIS [None]
  - TONGUE DISORDER [None]
  - VISUAL ACUITY REDUCED [None]
  - VISUAL FIELD DEFECT [None]
  - WEIGHT DECREASED [None]
